FAERS Safety Report 14607086 (Version 1)
Quarter: 2018Q1

REPORT INFORMATION
  Report Type: Spontaneous
  Country: US (occurrence: US)
  Receive Date: 20180306
  Receipt Date: 20180306
  Transmission Date: 20180509
  Serious: Yes (Other)
  Sender: FDA-Public Use
  Company Number: None

PATIENT
  Age: 75 Year
  Sex: Female
  Weight: 63.5 kg

DRUGS (3)
  1. ASPRIN [Concomitant]
     Active Substance: ASPIRIN
  2. KENALOG [Suspect]
     Active Substance: TRIAMCINOLONE ACETONIDE
     Indication: PROPHYLAXIS
     Dates: start: 20171018
  3. VITAMINS [Concomitant]
     Active Substance: VITAMINS

REACTIONS (12)
  - Irritable bowel syndrome [None]
  - Decreased appetite [None]
  - Insomnia [None]
  - Mood swings [None]
  - Muscular weakness [None]
  - Injection site pain [None]
  - Dizziness [None]
  - Balance disorder [None]
  - Arthralgia [None]
  - Wrong drug administered [None]
  - Alopecia [None]
  - Quality of life decreased [None]

NARRATIVE: CASE EVENT DATE: 20171018
